FAERS Safety Report 15317312 (Version 6)
Quarter: 2020Q2

REPORT INFORMATION
  Report Type: Report from Study
  Country: DE (occurrence: DE)
  Receive Date: 20180824
  Receipt Date: 20200627
  Transmission Date: 20200713
  Serious: Yes (Other)
  Sender: FDA-Public Use
  Company Number: PHHY2016DE140254

PATIENT
  Age: 61 Year
  Sex: Female
  Weight: 76 kg

DRUGS (48)
  1. PARACETAMOL [Concomitant]
     Active Substance: ACETAMINOPHEN
     Dosage: 500 MG, TID
     Route: 048
     Dates: start: 20170316, end: 20170320
  2. BROMAZANIL [Concomitant]
     Active Substance: BROMAZEPAM
     Indication: MALIGNANT MELANOMA
     Dosage: 6 MG, PRN
     Route: 048
     Dates: start: 20170322
  3. IBUPROFEN. [Concomitant]
     Active Substance: IBUPROFEN
     Indication: PRODUCT USED FOR UNKNOWN INDICATION
     Dosage: UNK
     Route: 065
     Dates: start: 201608
  4. TRAMETINIB [Suspect]
     Active Substance: TRAMETINIB
     Dosage: 2 MG, QD
     Route: 048
     Dates: start: 20170122, end: 20170321
  5. TRAMETINIB [Suspect]
     Active Substance: TRAMETINIB
     Dosage: 2 MG, QD
     Route: 048
     Dates: start: 20180503, end: 20181030
  6. CETAPHIL [Concomitant]
     Indication: PRODUCT USED FOR UNKNOWN INDICATION
     Dosage: UNK
     Route: 061
     Dates: start: 201701
  7. GEHWOL [Concomitant]
     Indication: PRODUCT USED FOR UNKNOWN INDICATION
     Dosage: 1 DF, QD
     Route: 061
     Dates: start: 201807
  8. TRAMETINIB [Suspect]
     Active Substance: TRAMETINIB
     Indication: METASTATIC MALIGNANT MELANOMA
     Dosage: 2 MG, QD
     Route: 048
     Dates: start: 20160707, end: 20161016
  9. TRAMETINIB [Suspect]
     Active Substance: TRAMETINIB
     Dosage: 2 MG, QD
     Route: 048
     Dates: start: 20161115, end: 20170121
  10. NOVALGIN [Concomitant]
     Indication: PRODUCT USED FOR UNKNOWN INDICATION
     Dosage: UNK
     Route: 065
     Dates: start: 20161108, end: 20161108
  11. ORALPAEDON [Concomitant]
     Indication: DIARRHOEA
     Dosage: UNK
     Route: 065
     Dates: start: 201610
  12. MONOVO [Concomitant]
     Indication: PRODUCT USED FOR UNKNOWN INDICATION
     Dosage: 1 MG, UNK
     Route: 061
     Dates: start: 201712
  13. PREDNISOLONE. [Concomitant]
     Active Substance: PREDNISOLONE
     Dosage: 10 MG, QD
     Route: 048
     Dates: start: 20180508
  14. UREADIN [Concomitant]
     Indication: PRODUCT USED FOR UNKNOWN INDICATION
     Dosage: UNK UNK, QD
     Route: 061
     Dates: start: 201805
  15. TRAMETINIB [Suspect]
     Active Substance: TRAMETINIB
     Dosage: UNK
     Route: 048
  16. PARACETAMOL [Concomitant]
     Active Substance: ACETAMINOPHEN
     Indication: MALIGNANT MELANOMA
     Dosage: 500 MG, TID
     Route: 048
     Dates: start: 201608
  17. TAVOR [Concomitant]
     Indication: SLEEP DISORDER
  18. YEAST [Concomitant]
     Active Substance: YEAST
     Indication: MALIGNANT MELANOMA
     Dosage: ON DEMAND
     Route: 065
     Dates: start: 20160823
  19. TOLERIANE [Concomitant]
     Indication: PRODUCT USED FOR UNKNOWN INDICATION
     Dosage: 1 DF (1 CARE PRODUCT FOR FACE)
     Route: 061
     Dates: start: 201701
  20. LEVOFLOXACIN. [Concomitant]
     Active Substance: LEVOFLOXACIN
     Indication: PRODUCT USED FOR UNKNOWN INDICATION
     Dosage: 1 DF, QD
     Route: 048
     Dates: start: 201703
  21. FUCIDINE [Concomitant]
     Indication: PRODUCT USED FOR UNKNOWN INDICATION
     Dosage: 1 DF, UNK
     Route: 061
     Dates: start: 201712
  22. PRONTOSAN [Concomitant]
     Indication: PRODUCT USED FOR UNKNOWN INDICATION
     Dosage: 1 OT, UNK
     Route: 061
     Dates: start: 201801
  23. TRAMETINIB [Suspect]
     Active Substance: TRAMETINIB
     Dosage: 2 MG, QD
     Route: 048
     Dates: start: 20170322, end: 20180417
  24. TAFINLAR [Suspect]
     Active Substance: DABRAFENIB MESYLATE
     Dosage: 100 MG, BID
     Route: 048
     Dates: start: 20170322, end: 20180417
  25. MAGNESIUM VERLA [Concomitant]
     Active Substance: MAGNESIUM
     Indication: MALIGNANT MELANOMA
     Dosage: UNK
     Route: 048
     Dates: start: 20160817
  26. RAMIPRIL. [Concomitant]
     Active Substance: RAMIPRIL
     Indication: HYPERTENSION
  27. ADVANTAN MILK [Concomitant]
     Indication: PRODUCT USED FOR UNKNOWN INDICATION
     Dosage: UNK
     Route: 061
     Dates: start: 201701
  28. CEFUR [Concomitant]
     Indication: PRODUCT USED FOR UNKNOWN INDICATION
     Dosage: 2 DF, QD
     Route: 048
     Dates: start: 20180104
  29. TRAMETINIB [Suspect]
     Active Substance: TRAMETINIB
     Dosage: 2 MG, QD
     Route: 048
     Dates: start: 20161027, end: 20161108
  30. TAFINLAR [Suspect]
     Active Substance: DABRAFENIB MESYLATE
     Dosage: 150 MG, BID
     Route: 048
     Dates: start: 20161017, end: 20161026
  31. TAFINLAR [Suspect]
     Active Substance: DABRAFENIB MESYLATE
     Dosage: 100 MG, BID
     Route: 048
     Dates: start: 20161115, end: 20170121
  32. TAFINLAR [Suspect]
     Active Substance: DABRAFENIB MESYLATE
     Dosage: 150 MG, BID
     Route: 048
     Dates: start: 20170122, end: 20170321
  33. TAFINLAR [Suspect]
     Active Substance: DABRAFENIB MESYLATE
     Dosage: 100 MG, BID
     Route: 048
     Dates: start: 20180503, end: 20181030
  34. PARACETAMOL [Concomitant]
     Active Substance: ACETAMINOPHEN
     Dosage: 1 G, QD
     Route: 042
     Dates: start: 20161108, end: 20161108
  35. TAVOR [Concomitant]
     Indication: MALIGNANT MELANOMA
     Dosage: 0.5 MG, PRN
     Route: 048
     Dates: start: 20160823
  36. ZOPICLONE [Concomitant]
     Active Substance: ZOPICLONE
     Indication: SLEEP DISORDER
  37. ADALAT [Concomitant]
     Active Substance: NIFEDIPINE
     Indication: PRODUCT USED FOR UNKNOWN INDICATION
     Dosage: UNK
     Route: 065
     Dates: start: 20161108, end: 20161108
  38. URTIMED [Concomitant]
     Active Substance: RUPATADINE FUMARATE
     Indication: PRODUCT USED FOR UNKNOWN INDICATION
     Dosage: 1 DF, TID
     Route: 048
     Dates: start: 201703
  39. ECURAL [Concomitant]
     Active Substance: MOMETASONE
     Indication: PRODUCT USED FOR UNKNOWN INDICATION
     Dosage: 1 DF, QD
     Route: 061
     Dates: start: 201807
  40. TAFINLAR [Suspect]
     Active Substance: DABRAFENIB MESYLATE
     Indication: METASTATIC MALIGNANT MELANOMA
     Dosage: 150 MG, BID
     Route: 048
     Dates: start: 20160707, end: 20161026
  41. TAFINLAR [Suspect]
     Active Substance: DABRAFENIB MESYLATE
     Dosage: 150 MG, BID
     Route: 048
     Dates: start: 20161027, end: 20161108
  42. TAFINLAR [Suspect]
     Active Substance: DABRAFENIB MESYLATE
     Dosage: UNK
     Route: 048
  43. YEAST [Concomitant]
     Active Substance: YEAST
     Indication: DIARRHOEA
     Dosage: UNK
     Route: 065
     Dates: start: 201610
  44. RAMIPRIL. [Concomitant]
     Active Substance: RAMIPRIL
     Indication: MALIGNANT MELANOMA
     Dosage: 10 MG, QD
     Route: 048
     Dates: start: 20161201
  45. ZOPICLONE [Concomitant]
     Active Substance: ZOPICLONE
     Indication: MALIGNANT MELANOMA
     Dosage: 7.5 MG, PRN
     Route: 048
     Dates: start: 2016
  46. PREDNISOLONE. [Concomitant]
     Active Substance: PREDNISOLONE
     Indication: PRODUCT USED FOR UNKNOWN INDICATION
     Dosage: 40 MG, TID
     Route: 048
     Dates: start: 20180307, end: 20180315
  47. ATODERM [Concomitant]
     Active Substance: COSMETICS
     Indication: PRODUCT USED FOR UNKNOWN INDICATION
     Dosage: 1 DF, UNK
     Route: 061
     Dates: start: 201803
  48. FUCICORT [Concomitant]
     Active Substance: BETAMETHASONE VALERATE\FUSIDIC ACID
     Indication: PRODUCT USED FOR UNKNOWN INDICATION
     Dosage: 1 COMPRESSES, UNK
     Route: 061
     Dates: start: 201801

REACTIONS (25)
  - Eczema asteatotic [Not Recovered/Not Resolved]
  - Pyrexia [Recovered/Resolved]
  - Chills [Recovered/Resolved]
  - Hyperkeratosis [Not Recovered/Not Resolved]
  - Pain in extremity [Unknown]
  - Feeling cold [Recovered/Resolved]
  - Pyrexia [Not Recovered/Not Resolved]
  - Eczema [Not Recovered/Not Resolved]
  - Urticaria [Unknown]
  - Dyspnoea [Recovered/Resolved]
  - Bacteriuria [Unknown]
  - Muscle spasms [Recovered/Resolved]
  - Hypothermia [Recovered/Resolved]
  - Haemorrhage [Recovered/Resolved]
  - Pyrexia [Recovered/Resolved]
  - Chills [Not Recovered/Not Resolved]
  - Pruritus [Not Recovered/Not Resolved]
  - Peripheral swelling [Unknown]
  - Feeling cold [Unknown]
  - Ear pain [Recovered/Resolved]
  - Skin fissures [Not Recovered/Not Resolved]
  - Pain in extremity [Recovered/Resolved]
  - Chills [Recovered/Resolved]
  - Fatigue [Not Recovered/Not Resolved]
  - Vertigo [Unknown]

NARRATIVE: CASE EVENT DATE: 20160707
